FAERS Safety Report 6985274-5 (Version None)
Quarter: 2010Q3

REPORT INFORMATION
  Report Type: 
  Country: None (occurrence: None)
  Receive Date: 20100915
  Receipt Date: 20100826
  Transmission Date: 20110219
  Serious: Yes (Hospitalization)
  Sender: FDA-Public Use
  Company Number: SI-JNJFOC-20100903519

PATIENT
  Sex: Male
  Weight: 62 kg

DRUGS (4)
  1. ZALDIAR [Suspect]
     Indication: SPINAL OSTEOARTHRITIS
     Route: 048
  2. DOBUTREX [Concomitant]
     Indication: CARDIAC FAILURE
     Route: 065
  3. EDEMID [Concomitant]
     Indication: CARDIAC FAILURE
     Route: 042
  4. MARIVARIN [Concomitant]
     Indication: ATRIAL FIBRILLATION
     Route: 065

REACTIONS (2)
  - CHOREA [None]
  - DYSARTHRIA [None]
